FAERS Safety Report 7774360-8 (Version None)
Quarter: 2011Q3

REPORT INFORMATION
  Report Type: 
  Country: None (occurrence: None)
  Receive Date: 20110921
  Receipt Date: 20110614
  Transmission Date: 20111222
  Serious: Yes (Hospitalization)
  Sender: FDA-Public Use
  Company Number: UTC-007685

PATIENT
  Age: 74 Year
  Sex: Male
  Weight: 97.7 kg

DRUGS (3)
  1. TRACLEER [Concomitant]
  2. TYVASO [Suspect]
     Indication: PULMONARY ARTERIAL HYPERTENSION
     Dosage: 18-54 MICROGRAMS (4 IN 1 D), INHALATION
     Route: 055
     Dates: start: 20091007
  3. COUMADIN [Concomitant]

REACTIONS (3)
  - RECTAL LESION [None]
  - GASTRIC HAEMORRHAGE [None]
  - HYPOTENSION [None]
